FAERS Safety Report 9344451 (Version 1)
Quarter: 2013Q2

REPORT INFORMATION
  Report Type: Report from Study
  Country: MX (occurrence: MX)
  Receive Date: 20130612
  Receipt Date: 20130612
  Transmission Date: 20140414
  Serious: Yes (Hospitalization)
  Sender: FDA-Public Use
  Company Number: PHHY2013MX059211

PATIENT
  Age: 68 Year
  Sex: Male

DRUGS (7)
  1. GALVUS MET [Suspect]
     Indication: DIABETES MELLITUS
     Dosage: 2 DF(1000/50MG), DAILY
     Route: 048
     Dates: start: 201210
  2. EXFORGE [Suspect]
     Dosage: 160/5 MG, UNK
  3. DISGREN [Concomitant]
     Indication: CARDIOVASCULAR DISORDER
     Dosage: 1 UKN, DAILY
  4. DOLO-TIAMINAL                      /00194601/ [Concomitant]
     Indication: VITAMIN B COMPLEX DEFICIENCY
     Dosage: 1 UKN, DAILY
  5. MICROGAN [Concomitant]
     Dosage: UNK UKN, UNK
  6. FLOXOTISAC [Concomitant]
     Indication: DEPRESSION
     Dosage: 1 UKN, DAILY
  7. OMEPRAZOLE [Concomitant]
     Dosage: 1 UKN, DAILY

REACTIONS (2)
  - Limb injury [Not Recovered/Not Resolved]
  - Blood pressure abnormal [Not Recovered/Not Resolved]
